FAERS Safety Report 8502838-8 (Version None)
Quarter: 2012Q3

REPORT INFORMATION
  Report Type: 
  Country: None (occurrence: None)
  Receive Date: 20120705
  Receipt Date: 20120705
  Transmission Date: 20120928
  Serious: Yes (Hospitalization, Other)
  Sender: FDA-Public Use
  Company Number: None

PATIENT
  Sex: Female

DRUGS (2)
  1. METHIMAZOLE [Suspect]
     Indication: HYPERTHYROIDISM
     Dosage: 2 TIMES A DAY PO
     Route: 048
  2. PROPRANOLOL [Concomitant]

REACTIONS (5)
  - PYREXIA [None]
  - NEUTROPHIL COUNT ABNORMAL [None]
  - PRURITUS [None]
  - TONSILLITIS [None]
  - STOMATITIS [None]
